FAERS Safety Report 9555360 (Version 1)
Quarter: 2013Q3

REPORT INFORMATION
  Report Type: Spontaneous
  Country: US (occurrence: None)
  Receive Date: 20130724
  Receipt Date: 20130724
  Transmission Date: 20140515
  Serious: No
  Sender: FDA-Public Use
  Company Number: PHEH2013US003201

PATIENT
  Age: 48 Year
  Sex: Female

DRUGS (17)
  1. GILENYA (FINGOLIMOD) CAPSULE, 0.5MG [Suspect]
     Route: 048
     Dates: start: 201102
  2. AMPYRA (FAMPRIDINE) [Concomitant]
  3. ARICEPT (DONEPEZIL HYDROCHLORIDE) [Concomitant]
  4. CALCIUM CARBONATE (CALCIUM CARBONATE) [Concomitant]
  5. CINNAMON (CINNAMOMUM VERUM) [Concomitant]
  6. LECITHIN (LECITHIN) [Concomitant]
  7. LIPITOR (ATORVASTATIN CALCIUM) [Concomitant]
  8. MULTI-VIT (VITAMINS NOS) [Concomitant]
  9. NASONEX (MOMETASONE FUROATE) [Concomitant]
  10. OMEGA-500 (DOCOSAHEXAENOIC ACID, EICOSAPENTAENOIC AICD) [Concomitant]
  11. PREMARIN (ESTROGENS CONJUGATED) [Concomitant]
  12. SINGULAIR [Concomitant]
  13. TOVIAZ (FESOTERODINE FUMARATE) [Concomitant]
  14. VITAMIN D3 (COLECALCIFEROL) [Concomitant]
  15. ZOLOFT (SERTRALINE HYDROCHLORIDE) [Concomitant]
  16. SYNTHROID (LEVOTHYROXINE SODIUM) [Concomitant]
  17. TOCOPHEROL (TOCOPHEROL) [Concomitant]

REACTIONS (4)
  - Ataxia [None]
  - Muscular weakness [None]
  - Sensory loss [None]
  - Depression [None]
